FAERS Safety Report 8036621 (Version 2)
Quarter: 2012Q4

REPORT INFORMATION
  Report Type: 
  Country: US (occurrence: US)
  Receive Date: 20110715
  Receipt Date: 20121221
  Transmission Date: 20130627
  Serious: Yes (Other)
  Sender: FDA-Public Use
  Company Number: US-ELI_LILLY_AND_COMPANY-US200903003349

PATIENT
  Sex: Female
  Weight: 81.63 kg

DRUGS (5)
  1. BYETTA [Suspect]
     Dosage: UNK, UNK
     Dates: start: 20060220
  2. BYETTA [Suspect]
     Dosage: 5 ug, bid
     Route: 058
     Dates: start: 20120517
  3. BYETTA [Suspect]
     Dosage: 10 ug, qd
     Route: 058
  4. BYETTA [Suspect]
     Dosage: 10 ug, bid
     Route: 058
  5. LANTUS [Concomitant]

REACTIONS (8)
  - Nephropathy [Not Recovered/Not Resolved]
  - Renal failure chronic [Not Recovered/Not Resolved]
  - Pancreatitis [Unknown]
  - Hypertension [Unknown]
  - Diabetic neuropathy [Unknown]
  - Emotional distress [Unknown]
  - Injury [Unknown]
  - Off label use [Unknown]
